FAERS Safety Report 9431799 (Version 1)
Quarter: 2013Q3

REPORT INFORMATION
  Report Type: Spontaneous
  Country: US (occurrence: US)
  Receive Date: 20130731
  Receipt Date: 20130731
  Transmission Date: 20140515
  Serious: Yes (Hospitalization)
  Sender: FDA-Public Use
  Company Number: US-AMGEN-USASP2013053237

PATIENT
  Age: 56 Year
  Sex: Female

DRUGS (2)
  1. NEUPOGEN [Suspect]
     Indication: PROPHYLAXIS
     Dosage: UNK UNK, AFTER CHEMO
     Route: 065
  2. CHEMOTHERAPEUTICS [Concomitant]
     Indication: OVARIAN CANCER
     Dosage: UNK
     Dates: start: 20130627

REACTIONS (2)
  - Pneumothorax [Unknown]
  - Cough [Not Recovered/Not Resolved]
